FAERS Safety Report 6446413-8 (Version None)
Quarter: 2009Q4

REPORT INFORMATION
  Report Type: 
  Country: None (occurrence: None)
  Receive Date: 20091119
  Receipt Date: 20091105
  Transmission Date: 20100525
  Serious: Yes (Other)
  Sender: FDA-Public Use
  Company Number: PHHY2009CH25728

PATIENT
  Sex: Female

DRUGS (2)
  1. ESTALIS SEQUI [Suspect]
     Indication: MENOPAUSAL DISORDER
     Dosage: 1 DF, QW2
     Route: 062
  2. PAROXETINE HCL [Concomitant]
     Dosage: 10 MG PER DAY

REACTIONS (2)
  - SUDDEN HEARING LOSS [None]
  - TINNITUS [None]
